FAERS Safety Report 4982366-7 (Version None)
Quarter: 2006Q2

REPORT INFORMATION
  Report Type: 
  Country: None (occurrence: None)
  Receive Date: 20060419
  Receipt Date: 20060407
  Transmission Date: 20061013
  Serious: Yes (Hospitalization)
  Sender: FDA-Public Use
  Company Number: 2005US001121

PATIENT
  Age: 58 Year
  Sex: Female

DRUGS (7)
  1. PROGRAF [Suspect]
     Indication: PROPHYLAXIS AGAINST TRANSPLANT REJECTION
     Dosage: 3 MG, BID, ORAL
     Route: 048
     Dates: start: 20050708
  2. MYCOPHENOLATE MOFETIL [Suspect]
     Indication: PROPHYLAXIS AGAINST TRANSPLANT REJECTION
     Dosage: 1000 MG, BID, ORAL
     Route: 048
     Dates: start: 20050703
  3. PREDNISONE TAB [Suspect]
     Indication: PROPHYLAXIS AGAINST TRANSPLANT REJECTION
     Dosage: 15 MG, ORAL
     Route: 048
     Dates: start: 20050711
  4. NORVASC [Concomitant]
  5. LOPRESSOR [Concomitant]
  6. K-PHOS NEUTRAL (SODIUM PHOSPHATE DIBASIC, POTASSIUM PHOSPHATE MONOBASI [Concomitant]
  7. PROTONIX [Concomitant]

REACTIONS (1)
  - PYELONEPHRITIS [None]
